FAERS Safety Report 7460143-5 (Version None)
Quarter: 2011Q2

REPORT INFORMATION
  Report Type: 
  Country: None (occurrence: None)
  Receive Date: 20110505
  Receipt Date: 20110425
  Transmission Date: 20111010
  Serious: Yes (Hospitalization, Other)
  Sender: FDA-Public Use
  Company Number: US-ELI_LILLY_AND_COMPANY-US201012002611

PATIENT
  Sex: Female

DRUGS (4)
  1. HUMALOG [Suspect]
     Dosage: UNK, OTHER
  2. LEVEMIR [Concomitant]
  3. AVANDIA [Concomitant]
     Dosage: UNK, UNKNOWN
     Route: 065
  4. HUMALOG [Suspect]
     Indication: DIABETES MELLITUS
     Dosage: UNK, OTHER

REACTIONS (11)
  - HYPERHIDROSIS [None]
  - DYSPNOEA [None]
  - CARDIAC DISORDER [None]
  - BLISTER [None]
  - HEART RATE INCREASED [None]
  - ATRIAL FIBRILLATION [None]
  - MIDDLE INSOMNIA [None]
  - REACTION TO PRESERVATIVES [None]
  - RASH [None]
  - HOSPITALISATION [None]
  - PRURITUS [None]
